FAERS Safety Report 12622373 (Version 3)
Quarter: 2016Q3

REPORT INFORMATION
  Report Type: Report from Study
  Country: US (occurrence: US)
  Receive Date: 20160804
  Receipt Date: 20160928
  Transmission Date: 20161109
  Serious: Yes (Hospitalization, Other)
  Sender: FDA-Public Use
  Company Number: US-BAYER-2016-149441

PATIENT
  Age: 37 Year
  Sex: Female
  Weight: 73.48 kg

DRUGS (5)
  1. XARELTO [Suspect]
     Active Substance: RIVAROXABAN
     Indication: EMBOLISM VENOUS
     Dosage: 20 MG, QD
     Route: 048
     Dates: start: 20150822
  2. XARELTO [Suspect]
     Active Substance: RIVAROXABAN
     Indication: THROMBOSIS
     Dosage: 20 MG, QD
     Route: 048
     Dates: start: 2013
  3. ACETYLSALICYLIC ACID({=100 MG) [Suspect]
     Active Substance: ASPIRIN
     Indication: THROMBOSIS
     Dosage: 81 MG, QD
     Route: 065
     Dates: start: 20040801
  4. NEURONTIN [Concomitant]
     Active Substance: GABAPENTIN
     Indication: DEEP VEIN THROMBOSIS
     Dosage: 300 MG, Q3HR
     Route: 065
     Dates: start: 20040801
  5. NEURONTIN [Concomitant]
     Active Substance: GABAPENTIN
     Indication: RESTLESS LEGS SYNDROME

REACTIONS (5)
  - Nail bed bleeding [Recovered/Resolved]
  - Product expiration date issue [Unknown]
  - Product lot number issue [Unknown]
  - Staphylococcal infection [Recovered/Resolved]
  - Menorrhagia [Recovered/Resolved]

NARRATIVE: CASE EVENT DATE: 2013
